FAERS Safety Report 5410666-5 (Version None)
Quarter: 2007Q3

REPORT INFORMATION
  Report Type: 
  Country: None (occurrence: None)
  Receive Date: 20070810
  Receipt Date: 20070518
  Transmission Date: 20080115
  Serious: No
  Sender: FDA-Public Use
  Company Number: A0652005A

PATIENT
  Sex: Female

DRUGS (1)
  1. PAXIL [Suspect]
     Indication: ANXIETY DISORDER
     Dosage: 15MG UNKNOWN
     Route: 065

REACTIONS (4)
  - ANXIETY [None]
  - FEELING ABNORMAL [None]
  - FOOD CRAVING [None]
  - WEIGHT INCREASED [None]
